FAERS Safety Report 9025696 (Version 3)
Quarter: 2013Q1

REPORT INFORMATION
  Report Type: Spontaneous
  Country: BR (occurrence: BR)
  Receive Date: 20130123
  Receipt Date: 20130325
  Transmission Date: 20140127
  Serious: Yes (Other)
  Sender: FDA-Public Use
  Company Number: BR-BIOGENIDEC-2013BI007025

PATIENT
  Age: 8 Day
  Sex: Female

DRUGS (4)
  1. AVONEX [Suspect]
     Indication: MATERNAL EXPOSURE TIMING UNSPECIFIED
     Route: 064
     Dates: start: 20110712, end: 201209
  2. COMPLEX VITAMIN (NOS) [Concomitant]
     Indication: PREGNANCY
     Route: 048
     Dates: start: 201209, end: 201210
  3. VIT C [Concomitant]
  4. FERROUS SULFATE [Concomitant]

REACTIONS (1)
  - Low birth weight baby [Unknown]
